FAERS Safety Report 10871031 (Version 1)
Quarter: 2015Q1

REPORT INFORMATION
  Report Type: Spontaneous
  Country: US (occurrence: US)
  Receive Date: 20150226
  Receipt Date: 20150226
  Transmission Date: 20150721
  Serious: Yes (Other)
  Sender: FDA-Public Use
  Company Number: US-PFIZER INC-2015068051

PATIENT
  Sex: Female

DRUGS (4)
  1. MORPHINE SULFATE. [Suspect]
     Active Substance: MORPHINE SULFATE
     Dosage: UNK, 1X/DAY (AT NIGHT)
  2. XANAX [Suspect]
     Active Substance: ALPRAZOLAM
     Dosage: UNK, 1X/DAY (AT NIGHT)
  3. GABAPENTIN. [Suspect]
     Active Substance: GABAPENTIN
     Dosage: UNK
  4. SOMA [Suspect]
     Active Substance: CARISOPRODOL
     Dosage: UNK, 1X/DAY (AT NIGHT)

REACTIONS (4)
  - Diabetes mellitus [Unknown]
  - Panic attack [Unknown]
  - Anxiety [Unknown]
  - Nervousness [Unknown]
